FAERS Safety Report 21448764 (Version 1)
Quarter: 2022Q4

REPORT INFORMATION
  Report Type: Report from Study
  Country: BE (occurrence: BE)
  Receive Date: 20221013
  Receipt Date: 20221013
  Transmission Date: 20230113
  Serious: Yes (Death)
  Sender: FDA-Public Use
  Company Number: BE-ABBVIE-4152836

PATIENT
  Sex: Male
  Weight: 75 kg

DRUGS (11)
  1. CARBIDOPA\LEVODOPA [Suspect]
     Active Substance: CARBIDOPA\LEVODOPA
     Indication: Parkinson^s disease
     Dosage: MD: 2.0 ML, CD: 1.8 ML/H, ED: 1.0 ML; REMAINS AT 16 HOURS
     Route: 050
     Dates: start: 20220817
  2. CARBIDOPA\LEVODOPA [Suspect]
     Active Substance: CARBIDOPA\LEVODOPA
     Route: 050
     Dates: start: 20151207
  3. CARBIDOPA\LEVODOPA [Suspect]
     Active Substance: CARBIDOPA\LEVODOPA
     Dosage: MD: 2.0 ML, CD: 2.0 ML/H, ED: 1.0 ML; REMAINS AT 16 HOURS
     Route: 050
     Dates: start: 20220516, end: 20220817
  4. AZILECT [Concomitant]
     Active Substance: RASAGILINE MESYLATE
     Indication: Product used for unknown indication
     Dosage: AT 07:00 HRS, AT 08:00 HRS
  5. STALEVO [Concomitant]
     Active Substance: CARBIDOPA\ENTACAPONE\LEVODOPA
     Indication: Product used for unknown indication
     Dosage: AT 07:00, 10:00, 13:00, 16:00 AND 19:00H
  6. VITAMIN B12 [Concomitant]
     Active Substance: CYANOCOBALAMIN
     Indication: Product used for unknown indication
     Dosage: AT 12:00 HRS
  7. ATACAND [Concomitant]
     Active Substance: CANDESARTAN CILEXETIL
     Indication: Product used for unknown indication
     Dosage: AT 12:00 HRS
  8. OXYBUTYNIN [Concomitant]
     Active Substance: OXYBUTYNIN
     Indication: Product used for unknown indication
     Dosage: 0.5 UNKNOWN?AT 7:00 AND 19:00 HRS
  9. ESCITALOPRAM [Concomitant]
     Active Substance: ESCITALOPRAM OXALATE
     Indication: Product used for unknown indication
  10. ASPIRIN [Concomitant]
     Active Substance: ASPIRIN
     Indication: Product used for unknown indication
     Dosage: AT 12:00 HRS
  11. PRAMIPEXOLE [Concomitant]
     Active Substance: PRAMIPEXOLE
     Indication: Product used for unknown indication
     Dosage: FORM STRENGTH: 0.26?AT 07:00 HRS

REACTIONS (1)
  - Death [Fatal]
